FAERS Safety Report 16534251 (Version 1)
Quarter: 2019Q3

REPORT INFORMATION
  Report Type: Spontaneous
  Country: US (occurrence: US)
  Receive Date: 20190705
  Receipt Date: 20190705
  Transmission Date: 20191004
  Serious: Yes (Other)
  Sender: FDA-Public Use
  Company Number: US-SUN PHARMACEUTICAL INDUSTRIES LTD-2019R1-202826

PATIENT
  Age: 53 Year
  Sex: Female

DRUGS (6)
  1. AMITRIPTYLINE [Suspect]
     Active Substance: AMITRIPTYLINE
     Indication: HEADACHE
     Dosage: 30 MILLIGRAM, DAILY
     Route: 065
  2. PANTOPRAZOLE [Concomitant]
     Active Substance: PANTOPRAZOLE
     Indication: GASTROOESOPHAGEAL REFLUX DISEASE
     Dosage: UNK
     Route: 065
  3. WARFARIN [Interacting]
     Active Substance: WARFARIN
     Indication: MITRAL VALVE STENOSIS
     Dosage: UNK
     Route: 065
  4. FENOFIBRATE. [Concomitant]
     Active Substance: FENOFIBRATE
     Indication: HYPERLIPIDAEMIA
     Dosage: UNK
     Route: 065
  5. DULOXETINE. [Interacting]
     Active Substance: DULOXETINE
     Indication: ANXIETY
     Dosage: UNK
     Route: 065
  6. TOPIRAMATE. [Interacting]
     Active Substance: TOPIRAMATE
     Indication: HEADACHE
     Dosage: UNK
     Route: 065

REACTIONS (3)
  - Drug interaction [Unknown]
  - Toxicity to various agents [Unknown]
  - International normalised ratio increased [Recovered/Resolved]
